FAERS Safety Report 22632046 (Version 1)
Quarter: 2023Q2

REPORT INFORMATION
  Report Type: Spontaneous
  Country: DE (occurrence: DE)
  Receive Date: 20230623
  Receipt Date: 20230623
  Transmission Date: 20230722
  Serious: Yes (Other)
  Sender: FDA-Public Use
  Company Number: DE-002147023-NVSC2023DE135340

PATIENT
  Age: 45 Year
  Sex: Male

DRUGS (6)
  1. TACROLIMUS [Suspect]
     Active Substance: TACROLIMUS
     Indication: Chronic graft versus host disease
     Dosage: UNK
     Route: 065
  2. SORAFENIB [Suspect]
     Active Substance: SORAFENIB
     Indication: Myeloid leukaemia
     Dosage: UNK
     Route: 065
  3. SORAFENIB [Suspect]
     Active Substance: SORAFENIB
     Dosage: UNK
     Route: 065
  4. PREDNISOLONE [Suspect]
     Active Substance: PREDNISOLONE
     Indication: Chronic graft versus host disease
     Dosage: 1 MG/KG, QD
     Route: 065
  5. CYCLOSPORINE [Suspect]
     Active Substance: CYCLOSPORINE
     Indication: Prophylaxis
     Dosage: UNK
     Route: 065
  6. CYCLOSPORINE [Suspect]
     Active Substance: CYCLOSPORINE
     Dosage: UNK
     Route: 065

REACTIONS (18)
  - Oral lichenoid reaction [Unknown]
  - Morphoea [Unknown]
  - Dry mouth [Unknown]
  - Dry eye [Unknown]
  - Sjogren^s syndrome [Unknown]
  - Poikiloderma [Unknown]
  - Joint range of motion decreased [Recovered/Resolved]
  - Fatigue [Unknown]
  - Ulcer [Recovered/Resolved]
  - Pigmentation disorder [Unknown]
  - Chronic graft versus host disease [Unknown]
  - Diabetic metabolic decompensation [Unknown]
  - Erythema [Unknown]
  - Hyperglycaemia [Unknown]
  - Cytomegalovirus infection reactivation [Recovered/Resolved]
  - Blood creatinine increased [Unknown]
  - Hypertension [Unknown]
  - Off label use [Unknown]
